FAERS Safety Report 7161532-9 (Version None)
Quarter: 2010Q4

REPORT INFORMATION
  Report Type: 
  Country: None (occurrence: None)
  Receive Date: 20101215
  Receipt Date: 20101207
  Transmission Date: 20110411
  Serious: Yes (Disabling, Other)
  Sender: FDA-Public Use
  Company Number: US-CELGENEUS-163-20785-10121029

PATIENT
  Sex: Female

DRUGS (2)
  1. THALOMID [Suspect]
     Indication: MULTIPLE MYELOMA
     Route: 048
     Dates: start: 20100901, end: 20100101
  2. THALOMID [Suspect]
     Route: 048
     Dates: start: 20101001

REACTIONS (2)
  - ABASIA [None]
  - LIMB DISCOMFORT [None]
